FAERS Safety Report 18700130 (Version 1)
Quarter: 2021Q1

REPORT INFORMATION
  Report Type: Spontaneous
  Country: IN (occurrence: IN)
  Receive Date: 20210105
  Receipt Date: 20210105
  Transmission Date: 20210419
  Serious: Yes (Hospitalization)
  Sender: FDA-Public Use
  Company Number: IN-ALKEM-IN-ALKEM-2020-08775

PATIENT
  Age: 62 Year
  Sex: Male

DRUGS (1)
  1. DABICLOT TABLET [Suspect]
     Active Substance: DABIGATRAN ETEXILATE MESYLATE
     Indication: CARDIAC VENTRICULAR THROMBOSIS
     Dosage: 150 MILLIGRAM, BID
     Route: 048
     Dates: end: 20201123

REACTIONS (1)
  - Gastrointestinal haemorrhage [Recovered/Resolved]

NARRATIVE: CASE EVENT DATE: 20201123
